FAERS Safety Report 22536338 (Version 1)
Quarter: 2023Q2

REPORT INFORMATION
  Report Type: Spontaneous
  Country: US (occurrence: US)
  Receive Date: 20230608
  Receipt Date: 20230608
  Transmission Date: 20230722
  Serious: Yes (Hospitalization)
  Sender: FDA-Public Use
  Company Number: US-ELI_LILLY_AND_COMPANY-US202306003225

PATIENT
  Sex: Male

DRUGS (1)
  1. MOUNJARO [Suspect]
     Active Substance: TIRZEPATIDE
     Indication: Product used for unknown indication
     Dosage: 2.5 MG, UNKNOWN
     Route: 065

REACTIONS (6)
  - Hypertension [Recovering/Resolving]
  - Depression [Not Recovered/Not Resolved]
  - Weight increased [Recovered/Resolved]
  - Feeding disorder [Recovered/Resolved]
  - Hallucination, auditory [Unknown]
  - Pruritus [Recovering/Resolving]
